FAERS Safety Report 18032877 (Version 2)
Quarter: 2021Q2

REPORT INFORMATION
  Report Type: Spontaneous
  Country: IL (occurrence: IL)
  Receive Date: 20200716
  Receipt Date: 20210628
  Transmission Date: 20210717
  Serious: Yes (Other)
  Sender: FDA-Public Use
  Company Number: IL-TEVA-2020-IL-1799342

PATIENT
  Age: 29 Year
  Sex: Female

DRUGS (5)
  1. ASSIVAL 10 MG [Suspect]
     Active Substance: DIAZEPAM
     Indication: SEIZURE
     Dosage: CUT 5 MG ASSIVAL TABLET IN TWO AND THEN ^LOWERED IT A LITTLE MORE TO BE 2 MG^
     Dates: start: 202004, end: 202004
  2. ASSIVAL 10 MG [Suspect]
     Active Substance: DIAZEPAM
     Dates: end: 202002
  3. MAGNESIUM [Concomitant]
     Active Substance: MAGNESIUM
  4. OPTALGIN [Concomitant]
     Active Substance: METAMIZOLE
     Indication: PAIN
     Dosage: VERY RARELY
     Route: 065
  5. ASSIVAL 10 MG [Suspect]
     Active Substance: DIAZEPAM

REACTIONS (4)
  - Wrong technique in product usage process [Unknown]
  - Loss of consciousness [Unknown]
  - Seizure [Not Recovered/Not Resolved]
  - Product supply issue [Unknown]

NARRATIVE: CASE EVENT DATE: 202002
